FAERS Safety Report 4483824-4 (Version None)
Quarter: 2004Q4

REPORT INFORMATION
  Report Type: 
  Country: None (occurrence: None)
  Receive Date: 20041025
  Receipt Date: 20040811
  Transmission Date: 20050328
  Serious: Yes (Other)
  Sender: FDA-Public Use
  Company Number: 200416084US

PATIENT
  Sex: Female

DRUGS (2)
  1. KETEK [Suspect]
     Indication: BRONCHITIS ACUTE
     Dosage: DOSE: UNK
  2. DECONGESTANTS AND ANTIALLERGICS [Concomitant]
     Dosage: DOSE: UNK

REACTIONS (2)
  - VISION BLURRED [None]
  - VISUAL FIELD DEFECT [None]
